FAERS Safety Report 26055653 (Version 2)
Quarter: 2025Q4

REPORT INFORMATION
  Report Type: Report from Study
  Country: US (occurrence: US)
  Receive Date: 20251117
  Receipt Date: 20251210
  Transmission Date: 20260117
  Serious: Yes (Other)
  Sender: ABBVIE
  Company Number: US-ABBVIE-6498367

PATIENT
  Age: 59 Year
  Sex: Male

DRUGS (1)
  1. CREON [Suspect]
     Active Substance: PANCRELIPASE AMYLASE\PANCRELIPASE LIPASE\PANCRELIPASE PROTEASE
     Indication: Pancreatic failure
     Dosage: TWO CAPSULES WITH EACH MEAL EAT
     Route: 048
     Dates: start: 20140922

REACTIONS (5)
  - Pancreaticoduodenectomy [Unknown]
  - Inappropriate schedule of product administration [Unknown]
  - Malignant neoplasm of ampulla of Vater [Unknown]
  - Dyspepsia [Recovering/Resolving]
  - Pancreatectomy [Unknown]

NARRATIVE: CASE EVENT DATE: 20140101
